FAERS Safety Report 17559869 (Version 1)
Quarter: 2020Q1

REPORT INFORMATION
  Report Type: Report from Study
  Country: GB (occurrence: CO)
  Receive Date: 20200319
  Receipt Date: 20200319
  Transmission Date: 20200409
  Serious: Yes (Other)
  Sender: FDA-Public Use
  Company Number: CO-ASTELLAS-2020US008931

PATIENT
  Sex: Female

DRUGS (1)
  1. ERLOTINIB [Suspect]
     Active Substance: ERLOTINIB
     Indication: PRODUCT USED FOR UNKNOWN INDICATION
     Dosage: UNK UNK, UNKNOWN FREQ.
     Route: 048

REACTIONS (12)
  - Purulent discharge [Unknown]
  - Haemorrhage [Unknown]
  - Scar [Unknown]
  - Nasal injury [Unknown]
  - Onychalgia [Unknown]
  - Acne [Unknown]
  - Erythema [Unknown]
  - Vulvovaginal dryness [Unknown]
  - Ingrowing nail [Unknown]
  - Blister [Unknown]
  - Deafness [Unknown]
  - Scab [Unknown]
